FAERS Safety Report 15596404 (Version 1)
Quarter: 2018Q4

REPORT INFORMATION
  Report Type: Spontaneous
  Country: US (occurrence: US)
  Receive Date: 20181107
  Receipt Date: 20181107
  Transmission Date: 20190205
  Serious: No
  Sender: FDA-Public Use
  Company Number: US-ALLERGAN-1844657US

PATIENT
  Sex: Male

DRUGS (2)
  1. TEFLARO [Suspect]
     Active Substance: CEFTAROLINE FOSAMIL
     Indication: PRODUCT USED FOR UNKNOWN INDICATION
     Dosage: UNK, SINGLE
     Route: 042
     Dates: start: 20180911, end: 20180911
  2. TEFLARO [Suspect]
     Active Substance: CEFTAROLINE FOSAMIL
     Dosage: UNK, SINGLE
     Route: 042
     Dates: start: 20180809, end: 20180809

REACTIONS (1)
  - Infusion site extravasation [Recovered/Resolved]
